FAERS Safety Report 25539064 (Version 1)
Quarter: 2025Q3

REPORT INFORMATION
  Report Type: Spontaneous
  Country: TR (occurrence: TR)
  Receive Date: 20250710
  Receipt Date: 20250710
  Transmission Date: 20251020
  Serious: Yes (Death, Other)
  Sender: ASTELLAS
  Company Number: TR-ASTELLAS-2022US009678

PATIENT
  Age: 22 Year
  Sex: Male

DRUGS (3)
  1. XOSPATA [Suspect]
     Active Substance: GILTERITINIB
     Indication: Product used for unknown indication
     Route: 065
  2. XOSPATA [Suspect]
     Active Substance: GILTERITINIB
     Dosage: 120 MG, ONCE DAILY
     Route: 065
     Dates: start: 202108
  3. XOSPATA [Suspect]
     Active Substance: GILTERITINIB
     Dosage: 200 MG, ONCE DAILY
     Route: 065

REACTIONS (5)
  - Death [Fatal]
  - Escherichia infection [Unknown]
  - Febrile neutropenia [Recovering/Resolving]
  - Graft versus host disease in gastrointestinal tract [Unknown]
  - Acute graft versus host disease in liver [Unknown]
